FAERS Safety Report 10978030 (Version 2)
Quarter: 2015Q2

REPORT INFORMATION
  Report Type: Report from Study
  Country: DE (occurrence: DE)
  Receive Date: 20150402
  Receipt Date: 20150430
  Transmission Date: 20150821
  Serious: Yes (Hospitalization, Other)
  Sender: FDA-Public Use
  Company Number: DE-ABBVIE-15K-062-1368116-00

PATIENT
  Age: 75 Year
  Sex: Female

DRUGS (1)
  1. HUMIRA [Suspect]
     Active Substance: ADALIMUMAB
     Indication: PSORIATIC ARTHROPATHY
     Route: 058
     Dates: start: 20140428

REACTIONS (14)
  - Nervous system disorder [Recovered/Resolved]
  - Chest discomfort [Recovering/Resolving]
  - Joint range of motion decreased [Recovering/Resolving]
  - Tachycardia [Recovered/Resolved]
  - Nausea [Recovering/Resolving]
  - Dyspnoea exertional [Not Recovered/Not Resolved]
  - Cardiac disorder [Recovering/Resolving]
  - Asthenia [Recovering/Resolving]
  - Back pain [Not Recovered/Not Resolved]
  - Pulmonary oedema [Recovering/Resolving]
  - Abdominal pain lower [Recovered/Resolved]
  - Atrial fibrillation [Not Recovered/Not Resolved]
  - Tachycardia [Not Recovered/Not Resolved]
  - Mobility decreased [Not Recovered/Not Resolved]

NARRATIVE: CASE EVENT DATE: 2015
